FAERS Safety Report 7253150-9 (Version None)
Quarter: 2011Q1

REPORT INFORMATION
  Report Type: 
  Country: None (occurrence: None)
  Receive Date: 20110129
  Receipt Date: 20100211
  Transmission Date: 20110831
  Serious: No
  Sender: FDA-Public Use
  Company Number: US-ABBOTT-10P-163-0625769-00

PATIENT
  Age: 52 Year
  Sex: Female

DRUGS (2)
  1. HUMIRA [Suspect]
     Indication: PRODUCT USED FOR UNKNOWN INDICATION
     Dosage: LOT NUMBER WAS NOT AVAILABLE.
     Route: 058
     Dates: start: 20090701, end: 20100101
  2. HUMIRA [Suspect]
     Route: 058
     Dates: start: 20100101

REACTIONS (4)
  - PRURITUS [None]
  - BREAKTHROUGH PAIN [None]
  - ERYTHEMA [None]
  - DERMATITIS [None]
